FAERS Safety Report 6775559-X (Version None)
Quarter: 2010Q2

REPORT INFORMATION
  Report Type: 
  Country: None (occurrence: None)
  Receive Date: 20100617
  Receipt Date: 20100609
  Transmission Date: 20101027
  Serious: Yes (Hospitalization)
  Sender: FDA-Public Use
  Company Number: FR-SANOFI-AVENTIS-2010SA033129

PATIENT
  Age: 88 Year
  Sex: Female

DRUGS (10)
  1. ZOLPIDEM [Suspect]
     Route: 048
  2. TROLOVOL [Suspect]
     Indication: RHEUMATOID ARTHRITIS
     Route: 048
     Dates: end: 20100422
  3. DIAMOX SRC [Concomitant]
     Route: 048
  4. FRAGMIN /SWE/ [Concomitant]
  5. DELURSAN [Concomitant]
     Route: 048
  6. KERLONE [Concomitant]
     Route: 048
  7. ESOMEPRAZOLE [Concomitant]
     Route: 048
  8. OSTRAM [Concomitant]
  9. SPECIAFOLDINE [Concomitant]
     Route: 048
  10. TAHOR [Concomitant]
     Route: 048

REACTIONS (3)
  - CHOLESTASIS [None]
  - SKIN ULCER [None]
  - SUPERINFECTION [None]
